FAERS Safety Report 7477790-7 (Version None)
Quarter: 2011Q2

REPORT INFORMATION
  Report Type: 
  Country: None (occurrence: None)
  Receive Date: 20110505
  Receipt Date: 20101014
  Transmission Date: 20111010
  Serious: Yes (Death)
  Sender: FDA-Public Use
  Company Number: UTC-006285

PATIENT
  Age: 60 Year
  Sex: Female

DRUGS (1)
  1. TYVASO [Suspect]
     Dosage: (18 MCG,3 BREATHS PER SESSION),INHALATION
     Route: 055

REACTIONS (1)
  - DYSPNOEA [None]
